FAERS Safety Report 6697153-1 (Version None)
Quarter: 2010Q2

REPORT INFORMATION
  Report Type: 
  Country: None (occurrence: None)
  Receive Date: 20100426
  Receipt Date: 20100415
  Transmission Date: 20101027
  Serious: Yes (Other)
  Sender: FDA-Public Use
  Company Number: BR-PFIZER INC-2010044549

PATIENT
  Age: 59 Year
  Sex: Male
  Weight: 70.9 kg

DRUGS (1)
  1. XALATAN [Suspect]
     Indication: GLAUCOMA
     Dosage: 1.5 UG (1 DROP) 1X/DAY
     Route: 047
     Dates: start: 20100401

REACTIONS (8)
  - ARRHYTHMIA [None]
  - BLOOD PRESSURE ABNORMAL [None]
  - BLOOD PRESSURE INCREASED [None]
  - EYELID PAIN [None]
  - HEADACHE [None]
  - MIGRAINE [None]
  - NERVOUSNESS [None]
  - TENSION [None]
